FAERS Safety Report 14923848 (Version 1)
Quarter: 2018Q2

REPORT INFORMATION
  Report Type: Spontaneous
  Country: DE (occurrence: DE)
  Receive Date: 20180522
  Receipt Date: 20180522
  Transmission Date: 20180711
  Serious: Yes (Hospitalization)
  Sender: FDA-Public Use
  Company Number: DE-PFIZER INC-2018206074

PATIENT
  Age: 64 Year
  Sex: Male

DRUGS (19)
  1. PREGABALIN. [Suspect]
     Active Substance: PREGABALIN
     Dosage: 75 MG 2X/DAY, 1-0-1-0
  2. FUROSEMIDE. [Concomitant]
     Active Substance: FUROSEMIDE
     Dosage: 40 MG, 1-0.5-0-0
  3. EBRANTIL /00631801/ [Concomitant]
     Active Substance: URAPIDIL
     Dosage: 90 MG 2X/DAY, 1-0-1-0
  4. ASPIRIN. [Concomitant]
     Active Substance: ASPIRIN
     Dosage: 100 MG 1X/DAY, 1-0-0-0
  5. KEPPRA [Suspect]
     Active Substance: LEVETIRACETAM
     Dosage: 1.5 G, UNK
  6. MOXONIDINE [Concomitant]
     Active Substance: MOXONIDINE
     Dosage: 0.3 MG 2X/DAY, 1-0-1-0
  7. LEVOTHYROXIN [Concomitant]
     Active Substance: LEVOTHYROXINE
     Dosage: 50 ?G 1X/DAY, 1-0-0-0
  8. ROPINIROL DURA [Concomitant]
     Dosage: 2X25MG 1X/DAY (0-0-2-0)
  9. CANDESARTAN. [Concomitant]
     Active Substance: CANDESARTAN
     Dosage: 32 MG DAILY, 0.5-0-0.5-0
  10. LEVODOPA BENSERAZIDE HYDROCHLO [Suspect]
     Active Substance: BENSERAZIDE HYDROCHLORIDE\LEVODOPA
     Dosage: [BENSERAZIDE HYDROCHLORIDE 100 MG]/[LEVODOPA 25 MG] 1X/DAY, 0-0-1-0
  11. PLAVIX [Concomitant]
     Active Substance: CLOPIDOGREL BISULFATE
     Dosage: 75 MG 1X/DAY, 1-0-0-0
  12. OXCARBAZEPIN [Concomitant]
     Active Substance: OXCARBAZEPINE
     Dosage: 750 MG 2X/DAY, 1-0-1-0
  13. BENSERAZIDE HYDROCHLORIDE/LEVODOPA [Suspect]
     Active Substance: BENSERAZIDE HYDROCHLORIDE\LEVODOPA
     Dosage: [BENSERAZIDE HYDROCHLORIDE 100 MG]/[LEVODOPA 25 MG], 0-0-1-0, 1X/DAY
  14. NIFEDIPIN [Concomitant]
     Active Substance: NIFEDIPINE
     Dosage: 20 MG 2X/DAY, 1-0-1-0
  15. MIRTAZAPIN [Concomitant]
     Active Substance: MIRTAZAPINE
     Dosage: 15 MG 1X/DAY, 0-0-1-0
  16. BISOHEXAL PLUS [Concomitant]
     Dosage: [BISOPROLOL FUMARATE 10 MG]/[HYDROCHLOROTHIAZIDE 25 MG], 1-0-0-0
  17. AMLODIPINE [Concomitant]
     Active Substance: AMLODIPINE BESYLATE
     Dosage: 10 MG 1X/DAY, 1-0-0-0
  18. ATORVASTATIN [Concomitant]
     Active Substance: ATORVASTATIN
     Dosage: 40 MG 1X/DAY, 0-0-1-0
  19. GLAUPOX [Concomitant]
     Dosage: 4X250 MG, 1X/DAY (4-0-0-0)

REACTIONS (1)
  - Seizure [Unknown]

NARRATIVE: CASE EVENT DATE: 20160416
